FAERS Safety Report 7723769-7 (Version None)
Quarter: 2011Q3

REPORT INFORMATION
  Report Type: 
  Country: None (occurrence: None)
  Receive Date: 20110901
  Receipt Date: 20110818
  Transmission Date: 20111222
  Serious: Yes (Other)
  Sender: FDA-Public Use
  Company Number: PHHY2011BR75344

PATIENT
  Sex: Female

DRUGS (3)
  1. DIOVAN HCT [Suspect]
     Indication: HYPERTENSION
     Dosage: 1 DF, (160/12.5 MG ONE TABLET DAILY)
  2. CLONAZEPAM [Concomitant]
     Dosage: 1 MG, (ONE TABLET AT NIGHT)
     Route: 048
  3. PROPAFENONE HCL [Concomitant]
     Dosage: 300 MG, QD

REACTIONS (3)
  - ARRHYTHMIA [None]
  - DYSPNOEA [None]
  - DYSPHONIA [None]
